FAERS Safety Report 7684430-0 (Version None)
Quarter: 2011Q3

REPORT INFORMATION
  Report Type: 
  Country: None (occurrence: None)
  Receive Date: 20110816
  Receipt Date: 20110809
  Transmission Date: 20111222
  Serious: No
  Sender: FDA-Public Use
  Company Number: US-BIOGENIDEC-2010BI029287

PATIENT
  Age: 40 Year
  Sex: Female

DRUGS (1)
  1. TYSABRI [Suspect]
     Indication: MULTIPLE SCLEROSIS
     Route: 042
     Dates: start: 20100721, end: 20110615

REACTIONS (4)
  - DECREASED APPETITE [None]
  - URINARY TRACT INFECTION [None]
  - HYPERTENSION [None]
  - WEIGHT DECREASED [None]
